FAERS Safety Report 15725927 (Version 1)
Quarter: 2018Q4

REPORT INFORMATION
  Report Type: Spontaneous
  Country: SN (occurrence: SN)
  Receive Date: 20181216
  Receipt Date: 20181216
  Transmission Date: 20190205
  Serious: Yes (Other)
  Sender: FDA-Public Use
  Company Number: PHHY2018SN181168

PATIENT
  Age: 35 Year
  Sex: Male

DRUGS (2)
  1. EFFERALGAN [Concomitant]
     Active Substance: ACETAMINOPHEN
     Indication: PRODUCT USED FOR UNKNOWN INDICATION
     Dosage: 1 G, UNK
     Route: 065
  2. COARTEM [Suspect]
     Active Substance: ARTEMETHER\LUMEFANTRINE
     Indication: MALARIA
     Dosage: 560 (80/480) OT, BID FOR 3 DAYS
     Route: 048
     Dates: start: 20181122, end: 20181124

REACTIONS (2)
  - Condition aggravated [Recovered/Resolved]
  - Blood smear test abnormal [Recovered/Resolved]
